FAERS Safety Report 13255472 (Version 1)
Quarter: 2017Q1

REPORT INFORMATION
  Report Type: Spontaneous
  Country: None (occurrence: US)
  Receive Date: 20170217
  Receipt Date: 20170217
  Transmission Date: 20170428
  Serious: No
  Sender: FDA-Public Use
  Company Number: None

PATIENT
  Age: 67 Year
  Sex: Female
  Weight: 35.5 kg

DRUGS (1)
  1. AMIKACIN [Suspect]
     Active Substance: AMIKACIN
     Indication: DRUG THERAPY
     Route: 042
     Dates: start: 20161111, end: 20170215

REACTIONS (1)
  - Deafness [None]

NARRATIVE: CASE EVENT DATE: 20170215
